FAERS Safety Report 9057512 (Version 1)
Quarter: 2013Q1

REPORT INFORMATION
  Report Type: Spontaneous
  Country: US (occurrence: None)
  Receive Date: 20130204
  Receipt Date: 20130204
  Transmission Date: 20140127
  Serious: Yes (Hospitalization)
  Sender: FDA-Public Use
  Company Number: None

PATIENT
  Age: 39 Year
  Sex: Female
  Weight: 60.33 kg

DRUGS (1)
  1. INVEGA [Suspect]
     Indication: PSYCHOTIC DISORDER
     Dosage: 156MG 1 DOSE IM
     Route: 030
     Dates: start: 20121215, end: 20121215

REACTIONS (3)
  - Drooling [None]
  - Anxiety [None]
  - Communication disorder [None]
